FAERS Safety Report 4935884-1 (Version None)
Quarter: 2006Q1

REPORT INFORMATION
  Report Type: 
  Country: None (occurrence: None)
  Receive Date: 20060302
  Receipt Date: 20060208
  Transmission Date: 20060701
  Serious: Yes (Other)
  Sender: FDA-Public Use
  Company Number: US200602001956

PATIENT
  Age: 40 Year
  Sex: Female

DRUGS (4)
  1. FORTEO [Suspect]
     Indication: OSTEOPOROSIS
     Dates: start: 20051101
  2. FORTEO PEN (FORTEO PEN) PEN, DISPOSABLE [Concomitant]
  3. DILANTIN [Concomitant]
  4. SYNTHROID [Concomitant]

REACTIONS (3)
  - ANTICONVULSANT DRUG LEVEL ABOVE THERAPEUTIC [None]
  - CONDITION AGGRAVATED [None]
  - CONVULSION [None]
